FAERS Safety Report 13733180 (Version 1)
Quarter: 2017Q3

REPORT INFORMATION
  Report Type: Spontaneous
  Country: US (occurrence: US)
  Receive Date: 20170707
  Receipt Date: 20170707
  Transmission Date: 20171127
  Serious: No
  Sender: FDA-Public Use
  Company Number: US-ROCHE-1407720

PATIENT

DRUGS (3)
  1. GANCICLOVIR. [Suspect]
     Active Substance: GANCICLOVIR
     Indication: HUMAN HERPESVIRUS 6 INFECTION
     Route: 065
  2. CIDOFOVIR. [Concomitant]
     Active Substance: CIDOFOVIR
  3. FOSCARNET [Concomitant]
     Active Substance: FOSCARNET

REACTIONS (1)
  - Drug ineffective [Unknown]
